FAERS Safety Report 9512184 (Version 3)
Quarter: 2013Q4

REPORT INFORMATION
  Report Type: Spontaneous
  Country: AT (occurrence: AT)
  Receive Date: 20130910
  Receipt Date: 20131128
  Transmission Date: 20140711
  Serious: Yes (Death, Life-Threatening, Hospitalization)
  Sender: FDA-Public Use
  Company Number: AT-JNJFOC-20130903991

PATIENT
  Age: 76 Year
  Sex: Male
  Weight: 69.84 kg

DRUGS (19)
  1. XARELTO [Suspect]
     Indication: CEREBROVASCULAR ACCIDENT PROPHYLAXIS
     Route: 048
     Dates: end: 20130902
  2. XARELTO [Suspect]
     Indication: ATRIAL FIBRILLATION
     Route: 048
     Dates: end: 20130902
  3. HEPARIN [Concomitant]
     Route: 065
  4. FRAGMIN [Concomitant]
     Route: 058
     Dates: start: 20130902
  5. TORASEMID [Concomitant]
     Route: 065
  6. CYMBALTA [Concomitant]
     Route: 065
  7. SEROQUEL [Concomitant]
     Route: 065
  8. EBRANTIL [Concomitant]
     Route: 065
  9. VALSARTAN [Concomitant]
     Route: 065
  10. CARVEDILOL [Concomitant]
     Route: 065
  11. ATORVASTATIN [Concomitant]
     Route: 065
  12. TEMESTA [Concomitant]
     Route: 065
  13. FORLAX [Concomitant]
     Route: 065
  14. TAMSULOSIN [Concomitant]
     Route: 065
  15. LASIX [Concomitant]
     Route: 065
  16. DIGIMERCK [Concomitant]
     Route: 065
  17. CERTOMYCIN [Concomitant]
     Route: 065
  18. AVELOX [Concomitant]
     Route: 065
  19. NOVALGIN [Concomitant]
     Route: 065

REACTIONS (4)
  - Cerebral haemorrhage [Fatal]
  - Hypertensive crisis [Fatal]
  - Urinary tract infection [Unknown]
  - Pyrexia [Unknown]
